FAERS Safety Report 7685322-3 (Version None)
Quarter: 2011Q3

REPORT INFORMATION
  Report Type: 
  Country: None (occurrence: None)
  Receive Date: 20110729
  Receipt Date: 20110720
  Transmission Date: 20111222
  Serious: Yes (Life-Threatening, Hospitalization)
  Sender: FDA-Public Use
  Company Number: AEGBR201100195

PATIENT
  Age: 22 Year
  Sex: Female

DRUGS (4)
  1. PENICILLIN V POTASSIUM [Concomitant]
  2. CEPHALEXIN [Concomitant]
  3. NORDETTE-28 [Concomitant]
  4. IMMUNE GLOBULIN IV NOS [Suspect]
     Indication: HENOCH-SCHONLEIN PURPURA
     Dosage: 40 GM;1X;IV
     Route: 042
     Dates: start: 20110608, end: 20110608

REACTIONS (3)
  - PHOTOPHOBIA [None]
  - MENINGITIS ASEPTIC [None]
  - CHEST PAIN [None]
